FAERS Safety Report 12326363 (Version 1)
Quarter: 2016Q2

REPORT INFORMATION
  Report Type: Spontaneous
  Country: US (occurrence: None)
  Receive Date: 20160502
  Receipt Date: 20160502
  Transmission Date: 20160815
  Serious: Yes (Hospitalization, Other)
  Sender: FDA-Public Use
  Company Number: None

PATIENT
  Age: 13 Year
  Sex: Female
  Weight: 61.24 kg

DRUGS (8)
  1. LAMICTAL [Concomitant]
     Active Substance: LAMOTRIGINE
  2. LITHIUM. [Concomitant]
     Active Substance: LITHIUM
  3. DEXMETHYLPHENIDATE, 10 MG [Suspect]
     Active Substance: DEXMETHYLPHENIDATE HYDROCHLORIDE
     Indication: ATTENTION DEFICIT/HYPERACTIVITY DISORDER
     Dosage: 1 TABLET(S) IN THE MORNING TAKEN BY MOUTH
     Route: 048
     Dates: start: 20150301, end: 20160416
  4. INTUNIV [Concomitant]
     Active Substance: GUANFACINE HYDROCHLORIDE
  5. POTASSIUM [Concomitant]
     Active Substance: POTASSIUM
  6. KRILL OIL [Concomitant]
     Active Substance: DIETARY SUPPLEMENT
  7. SAPHARIS [Concomitant]
  8. DOXEPIN [Concomitant]
     Active Substance: DOXEPIN

REACTIONS (4)
  - Blood pressure increased [None]
  - Heart rate increased [None]
  - Angina pectoris [None]
  - Tic [None]

NARRATIVE: CASE EVENT DATE: 20160416
